FAERS Safety Report 7305668 (Version 3)
Quarter: 2013Q1

REPORT INFORMATION
  Report Type: Report from Study
  Country: JP (occurrence: JP)
  Receive Date: 20100304
  Receipt Date: 20130104
  Transmission Date: 20140127
  Serious: Yes (Hospitalization, Other)
  Sender: FDA-Public Use
  Company Number: JP-ABBOTT-10P-087-0628798-00

PATIENT
  Age: 38 Year
  Sex: Male

DRUGS (5)
  1. KALETRA TABLETS [Suspect]
     Indication: HIV INFECTION
     Dosage: 4 DOSAGE FORMS
     Route: 048
     Dates: start: 20080401
  2. EPIVIR [Suspect]
     Indication: HIV INFECTION
     Route: 048
     Dates: start: 20080401
  3. VIREAD [Suspect]
     Indication: HIV INFECTION
     Route: 048
     Dates: start: 20080401
  4. OCTOCOG ALFA [Concomitant]
     Indication: HAEMOPHILIA
     Dosage: 5 TO 10 TIMES PER MONTH
     Dates: start: 20080401
  5. EMTRICITABINE W/TENOFOVIR DISOPROXIL FUMARATE [Concomitant]
     Indication: HIV INFECTION
     Dosage: 1 DOSAGE FORMS
     Route: 048
     Dates: start: 20110401

REACTIONS (1)
  - Hepatic cancer [Not Recovered/Not Resolved]
